FAERS Safety Report 16185334 (Version 2)
Quarter: 2019Q2

REPORT INFORMATION
  Report Type: Not Available
  Country: US (occurrence: US)
  Receive Date: 20190411
  Receipt Date: 20190521
  Transmission Date: 20190711
  Serious: No
  Sender: FDA-Public Use
  Company Number: US-NEUROCRINE BIOSCIENCES INC.-2019NBI00833

PATIENT
  Sex: Female

DRUGS (1)
  1. INGREZZA [Suspect]
     Active Substance: VALBENAZINE
     Indication: TARDIVE DYSKINESIA
     Route: 048
     Dates: start: 201902, end: 2019

REACTIONS (10)
  - Muscle spasms [Unknown]
  - Balance disorder [Unknown]
  - Cold sweat [Unknown]
  - Oral pain [Unknown]
  - Agitation [Unknown]
  - Tremor [Unknown]
  - Restlessness [Unknown]
  - Headache [Unknown]
  - Repetitive speech [Unknown]
  - Confusional state [Unknown]

NARRATIVE: CASE EVENT DATE: 2019
